FAERS Safety Report 4494451-7 (Version None)
Quarter: 2004Q4

REPORT INFORMATION
  Report Type: 
  Country: None (occurrence: None)
  Receive Date: 20041102
  Receipt Date: 20041020
  Transmission Date: 20050328
  Serious: Yes (Death, Other)
  Sender: FDA-Public Use
  Company Number: CA_040907284

PATIENT
  Age: 60 Year
  Sex: Male

DRUGS (8)
  1. XIGRIS [Suspect]
     Indication: SEPSIS
     Dosage: 24 UG/KG/HR
     Dates: start: 20040915
  2. PIP/TAZO [Concomitant]
  3. FLUCONAZOLE [Concomitant]
  4. CLARITHROMYCIN [Concomitant]
  5. PANTALOC (PANTALOC) [Concomitant]
  6. MULTIVITAMIN [Concomitant]
  7. VASOPRESSORS [Concomitant]
  8. PROPOFOL [Concomitant]

REACTIONS (5)
  - HAEMODIALYSIS [None]
  - INJECTION SITE HAEMORRHAGE [None]
  - PULMONARY HAEMORRHAGE [None]
  - SEPSIS [None]
  - THROMBOCYTOPENIA [None]
